FAERS Safety Report 6725436-5 (Version None)
Quarter: 2010Q2

REPORT INFORMATION
  Report Type: 
  Country: None (occurrence: None)
  Receive Date: 20100514
  Receipt Date: 20100510
  Transmission Date: 20101027
  Serious: Yes (Life-Threatening, Hospitalization)
  Sender: FDA-Public Use
  Company Number: CA-ASTRAZENECA-2010SE15704

PATIENT
  Age: 62 Year
  Sex: Female
  Weight: 73 kg

DRUGS (9)
  1. SEROQUEL XR [Suspect]
     Indication: DEPRESSION
     Route: 048
     Dates: start: 20100216, end: 20100218
  2. EFFEXOR [Interacting]
     Indication: DEPRESSION
     Route: 048
  3. CRESTOR [Concomitant]
  4. XANAX [Concomitant]
  5. AVANDIA [Concomitant]
  6. ASPIRIN [Concomitant]
  7. DIABETA [Concomitant]
  8. SYNTHROID [Concomitant]
  9. GLUCOPHAGE [Concomitant]

REACTIONS (4)
  - ALCOHOLISM [None]
  - CONVULSION [None]
  - DRUG INTERACTION [None]
  - HYPONATRAEMIC ENCEPHALOPATHY [None]
